FAERS Safety Report 6372711-2 (Version None)
Quarter: 2009Q3

REPORT INFORMATION
  Report Type: 
  Country: None (occurrence: None)
  Receive Date: 20090924
  Receipt Date: 20090410
  Transmission Date: 20100115
  Serious: Yes (Hospitalization)
  Sender: FDA-Public Use
  Company Number: US-ASTRAZENECA-2008UW27505

PATIENT
  Age: 14471 Day
  Sex: Female
  Weight: 158.8 kg

DRUGS (4)
  1. SEROQUEL [Suspect]
     Indication: BIPOLAR DISORDER
     Route: 048
     Dates: start: 20080301, end: 20080801
  2. ABILIFY [Concomitant]
  3. GEODON [Concomitant]
  4. LITHIUM [Concomitant]

REACTIONS (2)
  - BIPOLAR DISORDER [None]
  - TYPE 2 DIABETES MELLITUS [None]
